FAERS Safety Report 19121898 (Version 4)
Quarter: 2023Q2

REPORT INFORMATION
  Report Type: Spontaneous
  Country: JP (occurrence: JP)
  Receive Date: 20210412
  Receipt Date: 20230628
  Transmission Date: 20230721
  Serious: Yes (Other)
  Sender: FDA-Public Use
  Company Number: JP-GLAXOSMITHKLINE-JP2021JPN075061

PATIENT

DRUGS (3)
  1. NUCALA [Suspect]
     Active Substance: MEPOLIZUMAB
     Indication: Eosinophilic granulomatosis with polyangiitis
     Dosage: 300 MG ONCE EVERY 4 WEEKS
     Route: 058
     Dates: start: 20200831
  2. NUCALA [Suspect]
     Active Substance: MEPOLIZUMAB
     Dosage: UNK
     Dates: start: 202201
  3. PREDONINE [Concomitant]
     Active Substance: PREDNISOLONE

REACTIONS (3)
  - Lymphoma [Unknown]
  - Lymphadenopathy [Unknown]
  - Condition aggravated [Unknown]

NARRATIVE: CASE EVENT DATE: 20210301
